FAERS Safety Report 9271202 (Version 1)
Quarter: 2013Q2

REPORT INFORMATION
  Report Type: Spontaneous
  Country: AU (occurrence: AU)
  Receive Date: 20130506
  Receipt Date: 20130506
  Transmission Date: 20140414
  Serious: Yes (Death, Other)
  Sender: FDA-Public Use
  Company Number: PHHY2013AU043612

PATIENT
  Sex: Female

DRUGS (6)
  1. ACLASTA [Suspect]
     Dosage: UNK UKN, UNK
     Route: 042
  2. MELOXICAM [Suspect]
  3. AVAPRO [Suspect]
  4. CITRACAL [Concomitant]
  5. DERALIN [Concomitant]
  6. CLONAZEPAM [Concomitant]

REACTIONS (2)
  - Death [Fatal]
  - Renal failure acute [Unknown]
